FAERS Safety Report 18332146 (Version 2)
Quarter: 2020Q4

REPORT INFORMATION
  Report Type: Spontaneous
  Country: CZ (occurrence: CZ)
  Receive Date: 20201001
  Receipt Date: 20201008
  Transmission Date: 20210113
  Serious: Yes (Death)
  Sender: FDA-Public Use
  Company Number: CZ-ABBVIE-20K-217-3590302-00

PATIENT
  Sex: Female
  Weight: 77 kg

DRUGS (2)
  1. DUODOPA [Suspect]
     Active Substance: CARBIDOPA\LEVODOPA
  2. DUODOPA [Suspect]
     Active Substance: CARBIDOPA\LEVODOPA
     Indication: PARKINSON^S DISEASE
     Dosage: MORNING DOSE 6.5 ML/H; CONTINUOUS DOSE 6 ML/H; EXTRA DOSE 1 ML
     Route: 050
     Dates: start: 20150728

REACTIONS (1)
  - Circulatory collapse [Fatal]
